FAERS Safety Report 23813328 (Version 1)
Quarter: 2024Q2

REPORT INFORMATION
  Report Type: Spontaneous
  Country: CN (occurrence: CN)
  Receive Date: 20240503
  Receipt Date: 20240503
  Transmission Date: 20240716
  Serious: Yes (Life-Threatening, Hospitalization)
  Sender: FDA-Public Use
  Company Number: CN-ABBVIE-5741889

PATIENT
  Sex: Male
  Weight: 65 kg

DRUGS (3)
  1. LOPINAVIR\RITONAVIR [Suspect]
     Active Substance: LOPINAVIR\RITONAVIR
     Indication: Acquired immunodeficiency syndrome
     Dosage: 200/50
     Route: 048
     Dates: start: 20240326, end: 20240428
  2. LAMIVUDINE [Concomitant]
     Active Substance: LAMIVUDINE
     Indication: Acquired immunodeficiency syndrome
     Dosage: 1 TABLET
     Route: 048
     Dates: start: 20240326, end: 20240428
  3. TENOFOVIR DISOPROXIL FUMARATE [Concomitant]
     Active Substance: TENOFOVIR DISOPROXIL FUMARATE
     Indication: Acquired immunodeficiency syndrome
     Dosage: 1 TABLET
     Route: 048
     Dates: start: 20240326, end: 20240428

REACTIONS (8)
  - Anaphylactic shock [Recovering/Resolving]
  - Unresponsive to stimuli [Unknown]
  - Rhabdomyolysis [Recovering/Resolving]
  - Decreased appetite [Unknown]
  - Fatigue [Unknown]
  - Palpitations [Unknown]
  - Respiratory rate increased [Unknown]
  - Cardioversion [Unknown]

NARRATIVE: CASE EVENT DATE: 20240101
